FAERS Safety Report 24621277 (Version 1)
Quarter: 2024Q4

REPORT INFORMATION
  Report Type: Spontaneous
  Country: CN (occurrence: CN)
  Receive Date: 20241114
  Receipt Date: 20241114
  Transmission Date: 20250114
  Serious: Yes (Other)
  Sender: PFIZER
  Company Number: CN-PFIZER INC-PV202400145820

PATIENT
  Age: 51 Year
  Sex: Female
  Weight: 60 kg

DRUGS (3)
  1. AXITINIB [Suspect]
     Active Substance: AXITINIB
     Indication: Renal cancer
     Dosage: 5 MG, 2X/DAY
     Route: 048
     Dates: start: 20241009, end: 20241029
  2. AXITINIB [Suspect]
     Active Substance: AXITINIB
     Indication: Targeted cancer therapy
     Dosage: 5 MG, 1X/DAY
     Dates: start: 2024
  3. SINTILIMAB [Suspect]
     Active Substance: SINTILIMAB
     Indication: Renal cancer
     Dosage: 200 MG, ONCE EVERY 21 DAYS
     Route: 041
     Dates: start: 20240918, end: 20240918

REACTIONS (2)
  - Renal impairment [Unknown]
  - Off label use [Unknown]

NARRATIVE: CASE EVENT DATE: 20240101
